FAERS Safety Report 25777449 (Version 1)
Quarter: 2025Q3

REPORT INFORMATION
  Report Type: Spontaneous
  Country: US (occurrence: US)
  Receive Date: 20250909
  Receipt Date: 20250909
  Transmission Date: 20251021
  Serious: No
  Sender: TAKEDA
  Company Number: US-TAKEDA-2025TUS077628

PATIENT
  Sex: Male
  Weight: 138.35 kg

DRUGS (12)
  1. CARBAMAZEPINE [Suspect]
     Active Substance: CARBAMAZEPINE
     Indication: Psoriasis
  2. CALCIUM [Suspect]
     Active Substance: CALCIUM
     Indication: Psoriasis
  3. VALSARTAN [Suspect]
     Active Substance: VALSARTAN
     Indication: Psoriasis
  4. ALLOPURINOL [Suspect]
     Active Substance: ALLOPURINOL
     Indication: Psoriasis
  5. HYDROCHLOROTHIAZIDE [Suspect]
     Active Substance: HYDROCHLOROTHIAZIDE
     Indication: Psoriasis
  6. TAMSULOSIN [Suspect]
     Active Substance: TAMSULOSIN
     Indication: Psoriasis
  7. CLOBETASOL [Suspect]
     Active Substance: CLOBETASOL
     Indication: Psoriasis
  8. ALBUTEROL [Suspect]
     Active Substance: ALBUTEROL
     Indication: Psoriasis
  9. FLUTICASONE PROPIONATE [Suspect]
     Active Substance: FLUTICASONE PROPIONATE
     Indication: Psoriasis
  10. DULOXETINE [Suspect]
     Active Substance: DULOXETINE
     Indication: Psoriasis
  11. FEXOFENADINE [Suspect]
     Active Substance: FEXOFENADINE HYDROCHLORIDE
     Indication: Psoriasis
  12. TADALAFIL [Suspect]
     Active Substance: TADALAFIL
     Indication: Psoriasis

REACTIONS (14)
  - Psoriasis [Unknown]
  - Blood alkaline phosphatase increased [Unknown]
  - Blood sodium increased [Unknown]
  - Glomerular filtration rate decreased [Unknown]
  - Blood creatinine increased [Unknown]
  - Blood glucose increased [Unknown]
  - Monocyte count increased [Unknown]
  - Mean cell haemoglobin concentration increased [Unknown]
  - Haemoglobin decreased [Unknown]
  - Drug ineffective for unapproved indication [Unknown]
  - Product use in unapproved indication [Unknown]
  - Rash erythematous [Unknown]
  - Rash pruritic [Unknown]
  - Off label use [Unknown]
